FAERS Safety Report 6409023-4 (Version None)
Quarter: 2009Q4

REPORT INFORMATION
  Report Type: 
  Country: None (occurrence: None)
  Receive Date: 20091021
  Receipt Date: 20091017
  Transmission Date: 20100525
  Serious: Yes (Other)
  Sender: FDA-Public Use
  Company Number: US-AVENTIS-200919270US

PATIENT
  Sex: Male

DRUGS (6)
  1. LANTUS [Suspect]
     Indication: DIABETES MELLITUS
     Dosage: DOSE: 16 UNITS IN PM AND 22 UNITS IN AM
     Route: 058
  2. ANALGESICS [Concomitant]
     Dosage: DOSE: UNK
  3. DIOVANE [Concomitant]
     Dosage: DOSE: UNK
  4. NEXIUM [Concomitant]
     Dosage: DOSE: UNK
  5. GABAPENTIN [Concomitant]
     Dosage: DOSE: UNK
  6. IBUPROFEN [Concomitant]
     Dosage: DOSE: UNK

REACTIONS (4)
  - FALL [None]
  - HUMERUS FRACTURE [None]
  - HYPOGLYCAEMIA [None]
  - SPINAL FRACTURE [None]
